FAERS Safety Report 21042484 (Version 2)
Quarter: 2022Q3

REPORT INFORMATION
  Report Type: Spontaneous
  Country: PL (occurrence: PL)
  Receive Date: 20220705
  Receipt Date: 20220810
  Transmission Date: 20221026
  Serious: Yes (Other)
  Sender: FDA-Public Use
  Company Number: PL-CELLTRION INC.-2022PL007564

PATIENT

DRUGS (5)
  1. INFLIXIMAB [Suspect]
     Active Substance: INFLIXIMAB
     Indication: Crohn^s disease
     Dosage: UNK
     Route: 065
  2. INFLIXIMAB [Suspect]
     Active Substance: INFLIXIMAB
     Dosage: UNK, CYCLIC (1 YEAR CYCLE)
     Route: 065
     Dates: start: 2017
  3. INFLIXIMAB [Suspect]
     Active Substance: INFLIXIMAB
     Dosage: UNK, CYCLIC (2 YEAR CYCLE)
     Route: 065
     Dates: start: 2018
  4. METHYLPREDNISOLONE [Concomitant]
     Active Substance: METHYLPREDNISOLONE
     Indication: Urticaria
     Dosage: 2 MG (MAINTENANCE DOSE )
     Route: 065
  5. METHYLPREDNISOLONE [Concomitant]
     Active Substance: METHYLPREDNISOLONE
     Dosage: 6 MG
     Route: 065

REACTIONS (4)
  - Crohn^s disease [Unknown]
  - Hypersensitivity [Recovered/Resolved]
  - Dermatitis allergic [Recovered/Resolved]
  - Drug ineffective [Recovered/Resolved]
